FAERS Safety Report 5872479-X (Version None)
Quarter: 2008Q3

REPORT INFORMATION
  Report Type: 
  Country: None (occurrence: None)
  Receive Date: 20080905
  Receipt Date: 20080903
  Transmission Date: 20090109
  Serious: Yes (Life-Threatening, Hospitalization)
  Sender: FDA-Public Use
  Company Number: PHHY2008ES09313

PATIENT
  Age: 84 Year
  Sex: Female

DRUGS (6)
  1. VOLTAREN [Suspect]
     Indication: BACK PAIN
     Dosage: 100 MG, UNK
     Dates: start: 20080306, end: 20080308
  2. SINTROM [Interacting]
     Indication: ATRIAL FIBRILLATION
     Dosage: 4 MG, QD
     Route: 048
     Dates: end: 20080327
  3. OMEPRAZOLE [Interacting]
     Dosage: 20 MG DAILY
     Route: 048
  4. ENALAPRIL ^ABELLO^ [Concomitant]
     Indication: CARDIAC FAILURE
     Dosage: 5 MG DAILY
     Route: 048
  5. NOLOTIL [Concomitant]
     Indication: BACK PAIN
     Dosage: 1725 MG DAILY
     Route: 048
     Dates: start: 20080306, end: 20080308
  6. SEGURIL [Concomitant]
     Indication: CARDIAC FAILURE
     Dosage: 80 MG DAILY
     Route: 048

REACTIONS (9)
  - ARTHRITIS [None]
  - ASTHENIA [None]
  - DRUG INTERACTION [None]
  - DYSPNOEA [None]
  - ENDOSCOPY GASTROINTESTINAL ABNORMAL [None]
  - HAEMATOCRIT DECREASED [None]
  - HAEMOGLOBIN DECREASED [None]
  - MELAENA [None]
  - UPPER GASTROINTESTINAL HAEMORRHAGE [None]
